FAERS Safety Report 7600271-4 (Version None)
Quarter: 2011Q3

REPORT INFORMATION
  Report Type: 
  Country: None (occurrence: None)
  Receive Date: 20110711
  Receipt Date: 20110708
  Transmission Date: 20111222
  Serious: Yes (Other)
  Sender: FDA-Public Use
  Company Number: IT-SANOFI-AVENTIS-2011SA043261

PATIENT
  Age: 47 Year
  Sex: Male

DRUGS (1)
  1. ARAVA [Suspect]
     Indication: PSORIATIC ARTHROPATHY
     Route: 048
     Dates: start: 20060522, end: 20110122

REACTIONS (2)
  - LUNG NEOPLASM [None]
  - HEPATIC NEOPLASM [None]
